FAERS Safety Report 6993165-9 (Version None)
Quarter: 2010Q3

REPORT INFORMATION
  Report Type: 
  Country: None (occurrence: None)
  Receive Date: 20100917
  Receipt Date: 20100303
  Transmission Date: 20110219
  Serious: Yes (Other)
  Sender: FDA-Public Use
  Company Number: US-ASTRAZENECA-2009SE17926

PATIENT
  Age: 16892 Day

DRUGS (3)
  1. SEROQUEL [Suspect]
     Route: 048
     Dates: start: 20021211
  2. RISPERDAL [Concomitant]
     Route: 048
     Dates: start: 20021211
  3. NEURONTIN [Concomitant]
     Dosage: 400 TO 1200 MG
     Route: 048
     Dates: start: 20021211

REACTIONS (2)
  - DIABETES MELLITUS [None]
  - DIABETIC KETOACIDOSIS [None]
